FAERS Safety Report 9401844 (Version 1)
Quarter: 2013Q3

REPORT INFORMATION
  Report Type: Spontaneous
  Country: BR (occurrence: BR)
  Receive Date: 20130716
  Receipt Date: 20130716
  Transmission Date: 20140515
  Serious: Yes (Other)
  Sender: FDA-Public Use
  Company Number: BR-JNJFOC-20130702154

PATIENT
  Age: 64 Year
  Sex: Female

DRUGS (5)
  1. REMICADE [Suspect]
     Indication: RHEUMATOID ARTHRITIS
     Route: 042
     Dates: start: 2013
  2. REMICADE [Suspect]
     Indication: RHEUMATOID ARTHRITIS
     Dosage: THIRD INFUSION
     Route: 042
     Dates: start: 20130621
  3. LEVOTHYROXINE [Concomitant]
     Indication: HYPOTHYROIDISM
     Route: 065
     Dates: start: 2001
  4. OLMETEC [Concomitant]
     Indication: HYPERTENSION
     Route: 065
     Dates: start: 2012
  5. SELOZOK [Concomitant]
     Indication: ARRHYTHMIA
     Route: 065
     Dates: start: 2012

REACTIONS (5)
  - Myocardial infarction [Recovered/Resolved]
  - Tachycardia [Recovered/Resolved]
  - Infusion related reaction [Recovered/Resolved]
  - Hypersensitivity [Recovered/Resolved]
  - Malaise [Unknown]
